FAERS Safety Report 17717708 (Version 1)
Quarter: 2020Q2

REPORT INFORMATION
  Report Type: Spontaneous
  Country: CN (occurrence: CN)
  Receive Date: 20200428
  Receipt Date: 20200428
  Transmission Date: 20200714
  Serious: Yes (Other)
  Sender: FDA-Public Use
  Company Number: CN-ROCHE-2589070

PATIENT
  Age: 75 Year
  Sex: Male

DRUGS (5)
  1. AVASTIN [Suspect]
     Active Substance: BEVACIZUMAB
     Indication: LUNG ADENOCARCINOMA
     Route: 065
     Dates: start: 20190804
  2. CARBOPLATIN. [Concomitant]
     Active Substance: CARBOPLATIN
     Indication: LUNG ADENOCARCINOMA
     Route: 065
     Dates: end: 20190831
  3. CARBOPLATIN. [Concomitant]
     Active Substance: CARBOPLATIN
     Indication: METASTASES TO LYMPH NODES
  4. AVASTIN [Suspect]
     Active Substance: BEVACIZUMAB
     Indication: METASTASES TO LYMPH NODES
  5. NITRENDIPINE [Concomitant]
     Active Substance: NITRENDIPINE
     Indication: BLOOD PRESSURE MEASUREMENT

REACTIONS (3)
  - Anaemia [Unknown]
  - Bone marrow failure [Unknown]
  - Radiation pneumonitis [Unknown]

NARRATIVE: CASE EVENT DATE: 20200404
